FAERS Safety Report 23655531 (Version 1)
Quarter: 2024Q1

REPORT INFORMATION
  Report Type: Spontaneous
  Country: US (occurrence: US)
  Receive Date: 20240320
  Receipt Date: 20240320
  Transmission Date: 20240410
  Serious: Yes (Death, Life-Threatening, Hospitalization, Other)
  Sender: FDA-Public Use
  Company Number: None

PATIENT
  Age: 42 Year
  Sex: Female

DRUGS (6)
  1. IFOSFAMIDE [Suspect]
     Active Substance: IFOSFAMIDE
     Indication: Hodgkin^s disease nodular sclerosis recurrent
     Dosage: COMPLETED ICE CHEMOTHERAPY REGIMEN ON DAY 1
     Route: 065
  2. IFOSFAMIDE [Suspect]
     Active Substance: IFOSFAMIDE
     Indication: Hodgkin^s disease nodular sclerosis stage II
  3. CARBOPLATIN [Suspect]
     Active Substance: CARBOPLATIN
     Indication: Hodgkin^s disease nodular sclerosis stage II
     Dosage: COMPLETED ICE CHEMOTHERAPY REGIMEN ON DAY 1
     Route: 065
  4. CARBOPLATIN [Suspect]
     Active Substance: CARBOPLATIN
     Indication: Hodgkin^s disease nodular sclerosis recurrent
  5. ETOPOSIDE [Suspect]
     Active Substance: ETOPOSIDE
     Indication: Hodgkin^s disease nodular sclerosis recurrent
     Dosage: COMPLETED ICE CHEMOTHERAPY REGIMEN ON DAY 1
     Route: 065
  6. ETOPOSIDE [Suspect]
     Active Substance: ETOPOSIDE
     Indication: Hodgkin^s disease nodular sclerosis stage II

REACTIONS (13)
  - Posterior reversible encephalopathy syndrome [Fatal]
  - Cerebrovascular accident [Fatal]
  - Mental status changes [Fatal]
  - Congenital central nervous system anomaly [Fatal]
  - Foetal posterior cerebral artery [Fatal]
  - Cerebral haemorrhage [Fatal]
  - Subarachnoid haemorrhage [Fatal]
  - Brain herniation [Fatal]
  - Subdural haematoma [Fatal]
  - Cytotoxic oedema [Fatal]
  - Brain oedema [Fatal]
  - Mental impairment [Fatal]
  - Coma [Fatal]
